FAERS Safety Report 16844921 (Version 1)
Quarter: 2019Q3

REPORT INFORMATION
  Report Type: Spontaneous
  Country: JP (occurrence: JP)
  Receive Date: 20190924
  Receipt Date: 20190924
  Transmission Date: 20191005
  Serious: Yes (Hospitalization)
  Sender: FDA-Public Use
  Company Number: JP-BAYER-2019-169776

PATIENT
  Age: 7 Decade
  Sex: Male

DRUGS (3)
  1. XOFIGO [Suspect]
     Active Substance: RADIUM RA-223 DICHLORIDE
     Dosage: ONCE PER MONTH, ADMINISTRATED 5 TIMES
     Route: 042
     Dates: start: 20190515, end: 20190917
  2. RANMARK [Concomitant]
     Active Substance: DENOSUMAB
  3. ENZALUTAMIDE [Suspect]
     Active Substance: ENZALUTAMIDE

REACTIONS (5)
  - White blood cell count decreased [Not Recovered/Not Resolved]
  - Feeding disorder [None]
  - Malaise [Not Recovered/Not Resolved]
  - Red blood cell count decreased [Not Recovered/Not Resolved]
  - Nausea [Not Recovered/Not Resolved]

NARRATIVE: CASE EVENT DATE: 20190913
